FAERS Safety Report 8766871 (Version 2)
Quarter: 2012Q4

REPORT INFORMATION
  Report Type: 
  Country: US (occurrence: US)
  Receive Date: 20120904
  Receipt Date: 20120910
  Transmission Date: 20130627
  Serious: Yes (Life-Threatening, Hospitalization)
  Sender: FDA-Public Use
  Company Number: US-US-EMD SERONO, INC.-7158390

PATIENT
  Age: 40 None
  Sex: Female

DRUGS (1)
  1. REBIF [Suspect]
     Indication: MULTIPLE SCLEROSIS
     Route: 058
     Dates: start: 20120419, end: 20120822

REACTIONS (4)
  - Coma [Recovered/Resolved]
  - Convulsion [Unknown]
  - Asthenia [Unknown]
  - Fatigue [Unknown]
